FAERS Safety Report 10219927 (Version 1)
Quarter: 2014Q2

REPORT INFORMATION
  Report Type: Spontaneous
  Country: FR (occurrence: FR)
  Receive Date: 20140605
  Receipt Date: 20140605
  Transmission Date: 20141212
  Serious: Yes (Hospitalization)
  Sender: FDA-Public Use
  Company Number: FR-ELI_LILLY_AND_COMPANY-FR201405008706

PATIENT
  Age: 83 Year
  Sex: Female

DRUGS (9)
  1. FORSTEO [Suspect]
     Indication: OSTEOPOROTIC FRACTURE
     Dosage: 20 UG, QD
     Route: 058
     Dates: start: 20140407, end: 20140410
  2. KARDEGIC [Concomitant]
     Dosage: UNK
  3. PANTOPRAZOLE [Concomitant]
     Dosage: UNK
  4. CYMBALTA [Concomitant]
     Dosage: UNK
  5. EXACOR [Concomitant]
     Dosage: UNK
  6. FENOFIBRATE [Concomitant]
     Dosage: UNK
  7. DAFALGAN [Concomitant]
     Dosage: UNK
  8. ZOLPIDEM [Concomitant]
     Dosage: UNK
  9. METEOSPASMYL                       /01017401/ [Concomitant]
     Dosage: UNK

REACTIONS (1)
  - Anaphylactic shock [Recovered/Resolved]
